FAERS Safety Report 15451050 (Version 4)
Quarter: 2019Q1

REPORT INFORMATION
  Report Type: Spontaneous
  Country: FR (occurrence: FR)
  Receive Date: 20181001
  Receipt Date: 20190121
  Transmission Date: 20190417
  Serious: Yes (Life-Threatening, Hospitalization, Other)
  Sender: FDA-Public Use
  Company Number: PHHY2018FR106130

PATIENT
  Age: 59 Year
  Sex: Female
  Weight: 90 kg

DRUGS (15)
  1. ATROPINE. [Concomitant]
     Active Substance: ATROPINE
     Indication: CARDIOGENIC SHOCK
     Dosage: 1 MG, UNK
     Route: 065
  2. ISOPRENALINE [Concomitant]
     Active Substance: ISOPROTERENOL HYDROCHLORIDE
     Indication: CARDIOGENIC SHOCK
  3. BROMAZEPAM [Suspect]
     Active Substance: BROMAZEPAM
     Indication: PRODUCT USED FOR UNKNOWN INDICATION
     Route: 065
  4. FLECAINIDE [Suspect]
     Active Substance: FLECAINIDE
     Indication: PRODUCT USED FOR UNKNOWN INDICATION
     Route: 065
  5. FLUPENTIXOL [Suspect]
     Active Substance: FLUPENTIXOL
     Indication: PRODUCT USED FOR UNKNOWN INDICATION
     Route: 065
  6. ACEBUTOLOL [Suspect]
     Active Substance: ACEBUTOLOL
     Indication: PRODUCT USED FOR UNKNOWN INDICATION
     Dosage: UNK
     Route: 048
  7. ACEBUTOLOL [Suspect]
     Active Substance: ACEBUTOLOL
     Route: 048
  8. NICARDIPINE [Suspect]
     Active Substance: NICARDIPINE
     Indication: PRODUCT USED FOR UNKNOWN INDICATION
     Route: 065
  9. ISOPRENALINE [Concomitant]
     Active Substance: ISOPROTERENOL HYDROCHLORIDE
     Indication: BRADYCARDIA
     Route: 065
  10. FESOTERODINE [Suspect]
     Active Substance: FESOTERODINE
     Indication: PRODUCT USED FOR UNKNOWN INDICATION
     Route: 065
  11. VALPROMIDE [Suspect]
     Active Substance: VALPROMIDE
     Indication: PRODUCT USED FOR UNKNOWN INDICATION
     Route: 065
  12. DOBUTAMINE [Concomitant]
     Active Substance: DOBUTAMINE\DOBUTAMINE HYDROCHLORIDE
     Indication: CARDIOGENIC SHOCK
  13. VENLAFAXINE [Suspect]
     Active Substance: VENLAFAXINE HYDROCHLORIDE
     Indication: PRODUCT USED FOR UNKNOWN INDICATION
     Route: 065
  14. METFORMIN [Suspect]
     Active Substance: METFORMIN HYDROCHLORIDE
     Indication: PRODUCT USED FOR UNKNOWN INDICATION
     Route: 065
  15. DOBUTAMINE [Concomitant]
     Active Substance: DOBUTAMINE\DOBUTAMINE HYDROCHLORIDE
     Indication: BRADYCARDIA
     Dosage: 5 UG/KG, UNK (5 ?G/KG/MIN)
     Route: 065

REACTIONS (16)
  - Renal failure [Unknown]
  - Cardiogenic shock [Unknown]
  - Multiple organ dysfunction syndrome [Unknown]
  - Blood glucose decreased [Unknown]
  - Metabolic acidosis [Unknown]
  - Conduction disorder [Unknown]
  - Toxicity to various agents [Unknown]
  - Haemolytic anaemia [Unknown]
  - Extrasystoles [Unknown]
  - Cardio-respiratory arrest [Unknown]
  - Ventricular tachycardia [Unknown]
  - Intentional overdose [Unknown]
  - Cardiac arrest [Unknown]
  - Suicide attempt [Unknown]
  - Bradycardia [Unknown]
  - Coma scale abnormal [Unknown]

NARRATIVE: CASE EVENT DATE: 20170621
